FAERS Safety Report 4353628-1 (Version None)
Quarter: 2004Q2

REPORT INFORMATION
  Report Type: 
  Country: None (occurrence: None)
  Receive Date: 20040430
  Receipt Date: 20040423
  Transmission Date: 20050107
  Serious: No
  Sender: FDA-Public Use
  Company Number: 2004UW08254

PATIENT
  Age: 65 Year
  Sex: Female

DRUGS (3)
  1. TAMOXIFEN CITRATE [Suspect]
     Indication: BREAST CANCER
     Dates: start: 20000101
  2. TOPROL-XL [Concomitant]
  3. LANOXIN [Concomitant]

REACTIONS (3)
  - ANOSMIA [None]
  - DEAFNESS [None]
  - DYSGEUSIA [None]
